FAERS Safety Report 15603750 (Version 2)
Quarter: 2019Q1

REPORT INFORMATION
  Report Type: Spontaneous
  Country: US (occurrence: US)
  Receive Date: 20181109
  Receipt Date: 20190218
  Transmission Date: 20190417
  Serious: No
  Sender: FDA-Public Use
  Company Number: US-PFIZER INC-2018450108

PATIENT
  Age: 68 Year
  Sex: Female

DRUGS (6)
  1. OXYCODONE [Suspect]
     Active Substance: OXYCODONE
     Dosage: UNK
  2. VIBRAMYCIN [Suspect]
     Active Substance: DOXYCYCLINE
     Dosage: UNK
  3. BACTRIM [Suspect]
     Active Substance: SULFAMETHOXAZOLE\TRIMETHOPRIM
     Dosage: UNK
  4. PREDNISONE. [Suspect]
     Active Substance: PREDNISONE
     Dosage: UNK
  5. VIBRA-TABS [Suspect]
     Active Substance: DOXYCYCLINE HYCLATE
     Dosage: UNK
  6. OXYCONTIN [Suspect]
     Active Substance: OXYCODONE HYDROCHLORIDE
     Dosage: UNK

REACTIONS (1)
  - Drug hypersensitivity [Unknown]
